FAERS Safety Report 7415657-0 (Version None)
Quarter: 2011Q2

REPORT INFORMATION
  Report Type: 
  Country: None (occurrence: None)
  Receive Date: 20110414
  Receipt Date: 20110405
  Transmission Date: 20111010
  Serious: Yes (Hospitalization, Other)
  Sender: FDA-Public Use
  Company Number: SI-CUBIST-2011S1000269

PATIENT
  Age: 56 Year
  Sex: Male
  Weight: 73 kg

DRUGS (3)
  1. CUBICIN [Suspect]
     Indication: ENDOCARDITIS
     Route: 042
     Dates: start: 20110218, end: 20110221
  2. CLINDAMYCIN [Concomitant]
     Indication: PRODUCT USED FOR UNKNOWN INDICATION
     Route: 065
     Dates: start: 20110218, end: 20110221
  3. GENTAMICIN SULFATE [Concomitant]
     Indication: PRODUCT USED FOR UNKNOWN INDICATION
     Route: 065
     Dates: start: 20110218, end: 20110221

REACTIONS (3)
  - SEPSIS [None]
  - LUNG INFECTION [None]
  - SPONDYLITIS [None]
